FAERS Safety Report 20678054 (Version 1)
Quarter: 2022Q2

REPORT INFORMATION
  Report Type: Spontaneous
  Country: US (occurrence: US)
  Receive Date: 20220406
  Receipt Date: 20220406
  Transmission Date: 20220721
  Serious: No
  Sender: FDA-Public Use
  Company Number: US-ALLERGAN-2202304US

PATIENT

DRUGS (2)
  1. QULIPTA [Suspect]
     Active Substance: ATOGEPANT
     Indication: Headache
  2. QULIPTA [Suspect]
     Active Substance: ATOGEPANT
     Indication: Migraine

REACTIONS (1)
  - Abdominal pain upper [Unknown]
